FAERS Safety Report 4994321-1 (Version None)
Quarter: 2006Q1

REPORT INFORMATION
  Report Type: 
  Country: None (occurrence: None)
  Receive Date: 20060314
  Receipt Date: 20050926
  Transmission Date: 20060701
  Serious: Yes (Other)
  Sender: FDA-Public Use
  Company Number: 200512845BCC

PATIENT
  Sex: Female

DRUGS (1)
  1. ALEVE (CAPLET) [Suspect]
     Dosage: 660 MG, QD, ORAL
     Route: 048
     Dates: start: 20050709, end: 20050710

REACTIONS (1)
  - BLOOD URINE PRESENT [None]
